FAERS Safety Report 17292988 (Version 10)
Quarter: 2023Q2

REPORT INFORMATION
  Report Type: Spontaneous
  Country: US (occurrence: US)
  Receive Date: 20200121
  Receipt Date: 20230508
  Transmission Date: 20230721
  Serious: Yes (Other)
  Sender: FDA-Public Use
  Company Number: US-PFIZER INC-2019421384

PATIENT
  Age: 66 Year
  Sex: Female
  Weight: 108.86 kg

DRUGS (3)
  1. BOSULIF [Suspect]
     Active Substance: BOSUTINIB MONOHYDRATE
     Indication: Chronic myeloid leukaemia
     Dosage: 3 TABLETS ONCE DAILY
     Route: 048
  2. BOSULIF [Suspect]
     Active Substance: BOSUTINIB MONOHYDRATE
     Dosage: 400 MG, 1X/DAY
     Route: 048
  3. BOSULIF [Suspect]
     Active Substance: BOSUTINIB MONOHYDRATE
     Dosage: 3 TABLETS ONCE A DAY
     Route: 048

REACTIONS (11)
  - Drug dependence [Unknown]
  - Product dose omission issue [Unknown]
  - Product dispensing error [Not Recovered/Not Resolved]
  - Product prescribing issue [Unknown]
  - Illness [Unknown]
  - Asthenia [Unknown]
  - Diarrhoea [Unknown]
  - Chills [Unknown]
  - Abdominal pain upper [Unknown]
  - Malaise [Unknown]
  - Palpitations [Unknown]

NARRATIVE: CASE EVENT DATE: 20211001
